FAERS Safety Report 7964712-5 (Version None)
Quarter: 2011Q4

REPORT INFORMATION
  Report Type: 
  Country: None (occurrence: None)
  Receive Date: 20111208
  Receipt Date: 20111130
  Transmission Date: 20120403
  Serious: Yes (Life-Threatening, Hospitalization, Disabling)
  Sender: FDA-Public Use
  Company Number: JP-SANOFI-AVENTIS-2011SA060345

PATIENT
  Age: 66 Year
  Sex: Male
  Weight: 71.4 kg

DRUGS (13)
  1. ALL OTHER THERAPEUTIC PRODUCTS [Concomitant]
     Dates: start: 20030818, end: 20110627
  2. DEXAMETHASONE [Concomitant]
     Dates: start: 20081201
  3. SEROTONE [Concomitant]
     Dosage: 10 MG X 1 TIMES: 2 TIMES/DAY, 4 WEEKS
     Dates: start: 20110120, end: 20110201
  4. SEROTONE [Concomitant]
     Dosage: 10 MG X 1 TIMES: 2 TIMES/DAY, 4 WEEKS
     Dates: start: 20110401, end: 20110721
  5. TAXOTERE [Suspect]
     Dosage: DAILY DOSE :40MG X 1TIME ; FREQUENCY : 2 TIMES/( )DAYS, (4)WEEKS
     Route: 041
     Dates: start: 20110401, end: 20110721
  6. CASODEX [Concomitant]
     Dates: start: 20030818, end: 20110401
  7. TAXOTERE [Suspect]
     Indication: PROSTATE CANCER
     Dosage: DAILY DOSE :40MG X 1TIME ; FREQUENCY : 2 TIMES/( )DAYS, (4)WEEKS
     Route: 041
     Dates: start: 20110120, end: 20110201
  8. ETHINYL ESTRADIOL [Concomitant]
     Dates: start: 20081201, end: 20101201
  9. DEXAMETHASONE [Concomitant]
     Indication: PROSTATE CANCER
  10. ALL OTHER THERAPEUTIC PRODUCTS [Concomitant]
     Indication: PROSTATE CANCER
     Dosage: 3.3 MG X 2 X 1 TIMES: 2 TIMES/ DAYS, 4 WEEKS
     Dates: start: 20110120, end: 20110201
  11. ALL OTHER THERAPEUTIC PRODUCTS [Concomitant]
     Dosage: 3.3 MG X 2 X 1 TIMES: 2 TIMES/ DAYS, 4 WEEKS
     Dates: start: 20110401, end: 20110721
  12. ESTRAMUSTINE [Concomitant]
     Dosage: ADMINISTRATION ONLY FOR 6 DAYS EVERY COURSE ONLY FROM JAN 2011 TO FEB 2011
     Dates: start: 20110101, end: 20110201
  13. ZOMETA [Concomitant]
     Dosage: ONLY TWICE FROM JAN 2011 TO FEB 2011
     Route: 042
     Dates: start: 20110101, end: 20110201

REACTIONS (3)
  - BLINDNESS [None]
  - PNEUMONIA [None]
  - VISUAL ACUITY REDUCED [None]
